FAERS Safety Report 13010813 (Version 3)
Quarter: 2018Q2

REPORT INFORMATION
  Report Type: Spontaneous
  Country: AT (occurrence: AT)
  Receive Date: 20161208
  Receipt Date: 20180418
  Transmission Date: 20180711
  Serious: Yes (Hospitalization, Other)
  Sender: FDA-Public Use
  Company Number: AT-EISAI MEDICAL RESEARCH-EC-2016-022978

PATIENT
  Age: 72 Year
  Sex: Male
  Weight: 95 kg

DRUGS (15)
  1. CONCOR PLUS [Concomitant]
     Active Substance: BISOPROLOL FUMARATE\HYDROCHLOROTHIAZIDE
     Indication: HYPERTENSION
     Dosage: 5 MG
     Route: 048
  2. MARCOUMAR [Interacting]
     Active Substance: PHENPROCOUMON
     Dosage: DOSE INCREASED BY APPROX. 50%
     Route: 048
     Dates: start: 2016
  3. EUTHYROX [Concomitant]
     Active Substance: LEVOTHYROXINE SODIUM
     Indication: THYROID CANCER
     Route: 048
  4. DIOVAN [Concomitant]
     Active Substance: VALSARTAN
     Indication: PRODUCT USED FOR UNKNOWN INDICATION
     Route: 065
  5. LOPERAMID [Concomitant]
     Active Substance: LOPERAMIDE
     Indication: DIARRHOEA
     Dosage: UNKNOWN
     Route: 065
  6. LASIX [Concomitant]
     Active Substance: FUROSEMIDE
     Indication: PRODUCT USED FOR UNKNOWN INDICATION
     Route: 065
  7. LENVIMA [Suspect]
     Active Substance: LENVATINIB
     Indication: FOLLICULAR THYROID CANCER
     Route: 048
     Dates: start: 20161017, end: 201610
  8. COMBITHYREX FORTE/COMBITHYREX MITE [Interacting]
     Active Substance: LEVOTHYROXINE SODIUM\LIOTHYRONINE SODIUM
     Indication: THYROID CANCER
     Route: 048
     Dates: end: 2016
  9. LENVIMA [Interacting]
     Active Substance: LENVATINIB
     Route: 048
     Dates: start: 20161201
  10. COMBITHYREX FORTE/COMBITHYREX MITE [Interacting]
     Active Substance: LEVOTHYROXINE SODIUM\LIOTHYRONINE SODIUM
     Dosage: DOSE INCREASED BY APPROX. 50%
     Route: 048
     Dates: start: 2016
  11. EBRANTIL [Concomitant]
     Active Substance: URAPIDIL
     Indication: HYPERTENSION
     Dosage: 90 MG
     Route: 048
  12. LENVIMA [Interacting]
     Active Substance: LENVATINIB
     Indication: METASTASES TO LUNG
     Route: 048
     Dates: start: 2016, end: 20161130
  13. EXFORGE HCT [Concomitant]
     Active Substance: AMLODIPINE BESYLATE\HYDROCHLOROTHIAZIDE\VALSARTAN
     Indication: PRODUCT USED FOR UNKNOWN INDICATION
     Dosage: 10/160/12,5
     Route: 065
  14. MARCOUMAR [Interacting]
     Active Substance: PHENPROCOUMON
     Indication: ATRIAL FIBRILLATION
     Route: 048
     Dates: end: 2016
  15. TANATRIL [Concomitant]
     Active Substance: IMIDAPRIL
     Indication: THYROID CANCER
     Dosage: 20 MG
     Route: 048

REACTIONS (13)
  - Diarrhoea [Recovered/Resolved]
  - Drug interaction [Recovered/Resolved]
  - Apathy [Not Recovered/Not Resolved]
  - Decreased appetite [Unknown]
  - Weight decreased [Unknown]
  - Malabsorption [Recovered/Resolved]
  - Electrocardiogram QT prolonged [Not Recovered/Not Resolved]
  - Proteinuria [Recovered/Resolved]
  - Asthenia [Unknown]
  - Blood thyroid stimulating hormone increased [Recovered/Resolved]
  - International normalised ratio decreased [Recovered/Resolved]
  - Hypertensive crisis [Recovering/Resolving]
  - Fatigue [Unknown]

NARRATIVE: CASE EVENT DATE: 2016
